FAERS Safety Report 11506681 (Version 1)
Quarter: 2015Q3

REPORT INFORMATION
  Report Type: Spontaneous
  Country: US (occurrence: None)
  Receive Date: 20150914
  Receipt Date: 20150914
  Transmission Date: 20151125
  Serious: No
  Sender: FDA-Public Use
  Company Number: None

PATIENT
  Age: 52 Year
  Sex: Female

DRUGS (1)
  1. TANZEUM [Suspect]
     Active Substance: ALBIGLUTIDE
     Indication: TYPE 2 DIABETES MELLITUS
     Dosage: 50 SUBQ WEEKLY
     Dates: start: 20150827

REACTIONS (2)
  - Lipase increased [None]
  - Abdominal discomfort [None]

NARRATIVE: CASE EVENT DATE: 20150910
